FAERS Safety Report 14453343 (Version 4)
Quarter: 2018Q2

REPORT INFORMATION
  Report Type: Spontaneous
  Country: GB (occurrence: GB)
  Receive Date: 20180129
  Receipt Date: 20180518
  Transmission Date: 20180711
  Serious: Yes (Other)
  Sender: FDA-Public Use
  Company Number: PHHY2017GB199664

PATIENT
  Age: 73 Year
  Sex: Female
  Weight: 50.2 kg

DRUGS (16)
  1. SODIUM CHLORIDE. [Suspect]
     Active Substance: SODIUM CHLORIDE
     Indication: MEDICATION DILUTION
     Dosage: UNK UNK, CYCLIC
     Route: 065
     Dates: start: 20171103, end: 20171103
  2. VELCADE [Suspect]
     Active Substance: BORTEZOMIB
     Dosage: 1.3 MG/M2, CYCLIC (VMP REGIMEN, DAY 8 OF CYCLE 2)
     Route: 065
     Dates: start: 20171110, end: 20171110
  3. VELCADE [Suspect]
     Active Substance: BORTEZOMIB
     Dosage: UNK, CYCLIC
     Route: 065
  4. METOCLOPRAMIDE. [Concomitant]
     Active Substance: METOCLOPRAMIDE
     Indication: PRODUCT USED FOR UNKNOWN INDICATION
     Dosage: 10 MG, PRN
     Route: 065
  5. VELCADE [Suspect]
     Active Substance: BORTEZOMIB
     Dosage: 1.3 MG/M2, CYCLIC (VMP REGIMEN, DAY 4 OF CYCLE 2)
     Route: 065
     Dates: start: 20171106, end: 20171106
  6. SODIUM CHLORIDE. [Suspect]
     Active Substance: SODIUM CHLORIDE
     Dosage: UNK UNK, CYCLIC
     Route: 065
     Dates: start: 20171106, end: 20171106
  7. SODIUM CHLORIDE. [Suspect]
     Active Substance: SODIUM CHLORIDE
     Dosage: UNK UNK, CYCLIC
     Route: 065
     Dates: start: 20171110, end: 20171110
  8. MELPHALAN. [Suspect]
     Active Substance: MELPHALAN
     Dosage: UNK, CYCLIC
     Route: 065
  9. BENDROFLUMETHIAZIDE [Concomitant]
     Active Substance: BENDROFLUMETHIAZIDE
     Indication: PRODUCT USED FOR UNKNOWN INDICATION
     Dosage: 2.5 MG, QD (EVERY MORNING)
     Route: 065
  10. VELCADE [Suspect]
     Active Substance: BORTEZOMIB
     Indication: PLASMA CELL LEUKAEMIA
     Dosage: 1.3 MG/M2, CYCLIC (VMP REGIMEN, DAY 1 OF CYCLE 2)
     Route: 065
     Dates: start: 20171103, end: 20171103
  11. OMEPRAZOLE. [Concomitant]
     Active Substance: OMEPRAZOLE
     Indication: PRODUCT USED FOR UNKNOWN INDICATION
     Dosage: 20 MG, QD (EVERY MORNING)
     Route: 065
  12. PREDNISOLONE. [Suspect]
     Active Substance: PREDNISOLONE
     Indication: PLASMA CELL LEUKAEMIA
     Dosage: 70 MG, CYCLIC (VMP REGIMEN, DAY 1 TO 4, CYCLE 2)
     Route: 065
     Dates: start: 20171103, end: 20171106
  13. MELPHALAN. [Suspect]
     Active Substance: MELPHALAN
     Indication: PLASMA CELL LEUKAEMIA
     Dosage: 14 MG, QD (VMP REGIMEN, DAY 1 TO 4, CYCLE 2)
     Route: 065
     Dates: start: 20171103, end: 20171106
  14. SERTRALINE [Concomitant]
     Active Substance: SERTRALINE HYDROCHLORIDE
     Indication: PRODUCT USED FOR UNKNOWN INDICATION
     Dosage: 50 MG, QD (EVERY MORNING)
     Route: 065
  15. PREDNISOLONE. [Suspect]
     Active Substance: PREDNISOLONE
     Dosage: UNK UNK, CYCLIC
     Route: 065
  16. RAMIPRIL. [Concomitant]
     Active Substance: RAMIPRIL
     Indication: PRODUCT USED FOR UNKNOWN INDICATION
     Dosage: 10 MG, QD (EVERY MORNING)
     Route: 065

REACTIONS (5)
  - Abnormal behaviour [Not Recovered/Not Resolved]
  - Confusional state [Not Recovered/Not Resolved]
  - Paranoia [Not Recovered/Not Resolved]
  - Emotional distress [Not Recovered/Not Resolved]
  - Agitation [Not Recovered/Not Resolved]

NARRATIVE: CASE EVENT DATE: 20171111
